FAERS Safety Report 8207742-0 (Version None)
Quarter: 2012Q1

REPORT INFORMATION
  Report Type: 
  Country: None (occurrence: None)
  Receive Date: 20120314
  Receipt Date: 20120313
  Transmission Date: 20120608
  Serious: Yes (Other)
  Sender: FDA-Public Use
  Company Number: US-BAYER-2012-024489

PATIENT
  Age: 41 Year
  Sex: Female

DRUGS (4)
  1. INTERFERON BETA-1B [Suspect]
     Indication: MULTIPLE SCLEROSIS
     Dosage: UNK
     Route: 058
     Dates: start: 20060921, end: 20070215
  2. INTERFERON BETA-1B [Suspect]
     Dosage: UNK
     Route: 058
     Dates: start: 20070501, end: 20081210
  3. INTERFERON BETA-1B [Suspect]
     Dosage: 4 MIU, QOD
     Route: 058
     Dates: start: 20120221
  4. INTERFERON BETA-1B [Suspect]
     Dosage: UNK
     Route: 058
     Dates: start: 20090402, end: 20091130

REACTIONS (4)
  - NASAL CONGESTION [None]
  - SINUSITIS [None]
  - INJECTION SITE RASH [None]
  - UPPER-AIRWAY COUGH SYNDROME [None]
